FAERS Safety Report 10567617 (Version 1)
Quarter: 2014Q4

REPORT INFORMATION
  Report Type: Spontaneous
  Country: US (occurrence: None)
  Receive Date: 20141105
  Receipt Date: 20141105
  Transmission Date: 20150529
  Serious: No
  Sender: FDA-Public Use
  Company Number: None

PATIENT
  Age: 28 Year
  Sex: Male
  Weight: 70.31 kg

DRUGS (1)
  1. RISPERDAL [Suspect]
     Active Substance: RISPERIDONE
     Indication: BIPOLAR DISORDER
     Dosage: 1, TWICE DAILY, TAKEN BY MOUTH
     Route: 048
     Dates: start: 20141012, end: 20141104

REACTIONS (6)
  - Disturbance in sexual arousal [None]
  - Spermatogenesis abnormal [None]
  - Distractibility [None]
  - Irritability [None]
  - Orgasmic sensation decreased [None]
  - Libido decreased [None]

NARRATIVE: CASE EVENT DATE: 20141028
